FAERS Safety Report 5523406-6 (Version None)
Quarter: 2007Q4

REPORT INFORMATION
  Report Type: 
  Country: None (occurrence: None)
  Receive Date: 20071119
  Receipt Date: 20071119
  Transmission Date: 20080405
  Serious: No
  Sender: FDA-Public Use
  Company Number: None

PATIENT

DRUGS (5)
  1. MORPHINE SULFATE [Suspect]
     Dosage: INJECTABLE
  2. HYDROMORPHONE HYDROCHLORIDE [Suspect]
     Dosage: INJECTABLE
  3. CARPUJECT LUER LOCK SLIM-PAK [Suspect]
     Dosage: INJECTABLE
  4. CARPUJECT LUER LOCK SLIK-PAK [Suspect]
     Dosage: INJECTABLE
  5. DIPHENHYDRAMINE HYDROCHLORIDE [Suspect]
     Dosage: INJECTABLE

REACTIONS (2)
  - CIRCUMSTANCE OR INFORMATION CAPABLE OF LEADING TO MEDICATION ERROR [None]
  - MEDICATION ERROR [None]
